FAERS Safety Report 11342788 (Version 1)
Quarter: 2015Q3

REPORT INFORMATION
  Report Type: Spontaneous
  Country: US (occurrence: US)
  Receive Date: 20150805
  Receipt Date: 20150805
  Transmission Date: 20151125
  Serious: No
  Sender: FDA-Public Use
  Company Number: US-009507513-1507USA010170

PATIENT
  Age: 14 Year
  Sex: Male

DRUGS (1)
  1. ASMANEX [Suspect]
     Active Substance: MOMETASONE FUROATE
     Indication: ASTHMA
     Dosage: 220 MCG 1 PUFF, DAILY
     Route: 055

REACTIONS (2)
  - Product contamination microbial [Unknown]
  - Exposure to mould [Unknown]

NARRATIVE: CASE EVENT DATE: 20150707
